FAERS Safety Report 4355227-4 (Version None)
Quarter: 2004Q2

REPORT INFORMATION
  Report Type: 
  Country: None (occurrence: None)
  Receive Date: 20040504
  Receipt Date: 20040423
  Transmission Date: 20050107
  Serious: Yes (Other)
  Sender: FDA-Public Use
  Company Number: WAES 0304GBR00050

PATIENT
  Age: 60 Year
  Sex: Female

DRUGS (3)
  1. TAB ETORICOXIB 120 MG [Suspect]
     Dosage: 120 MG/PO
     Route: 048
  2. COZAAR [Suspect]
     Dosage: PO
     Route: 048
  3. DIAZIDE [Suspect]

REACTIONS (1)
  - RENAL IMPAIRMENT [None]
